FAERS Safety Report 7344489-7 (Version None)
Quarter: 2011Q1

REPORT INFORMATION
  Report Type: 
  Country: None (occurrence: None)
  Receive Date: 20110310
  Receipt Date: 20110210
  Transmission Date: 20110831
  Serious: Yes (Other)
  Sender: FDA-Public Use
  Company Number: US-BAYER-201034861NA

PATIENT
  Sex: Female

DRUGS (4)
  1. OCELLA [Suspect]
     Indication: ACNE
  2. YAZ [Suspect]
     Indication: ACNE
  3. YASMIN [Suspect]
     Indication: ACNE
  4. ZOFRAN [Concomitant]

REACTIONS (8)
  - CHOLELITHIASIS [None]
  - CHOLECYSTITIS CHRONIC [None]
  - LIPASE INCREASED [None]
  - ABDOMINAL PAIN UPPER [None]
  - PANCREATITIS [None]
  - INJURY [None]
  - NAUSEA [None]
  - VOMITING [None]
